FAERS Safety Report 7617733-6 (Version None)
Quarter: 2011Q3

REPORT INFORMATION
  Report Type: 
  Country: None (occurrence: None)
  Receive Date: 20110718
  Receipt Date: 20110712
  Transmission Date: 20111222
  Serious: Yes (Death)
  Sender: FDA-Public Use
  Company Number: PHHY2011AU62232

PATIENT
  Age: 39 Year
  Sex: Male

DRUGS (7)
  1. METHADONE HCL [Suspect]
     Dosage: UNK
  2. ACETAMINOPHEN [Interacting]
     Dosage: UNK
  3. METHOXYAMPHETAMINE [Interacting]
     Dosage: UNK
  4. METHYLENEDIOXYMETHAMPHETAMINE [Interacting]
     Dosage: UNK
  5. METHAMPHETAMINE HYDROCHLORIDE [Interacting]
     Dosage: UNK
  6. ETHANOL [Interacting]
     Dosage: UNK
  7. AMPHETAMINE [Interacting]
     Dosage: UNK

REACTIONS (4)
  - TOXICITY TO VARIOUS AGENTS [None]
  - MULTIPLE INJURIES [None]
  - DRUG INTERACTION [None]
  - HEPATITIS C [None]
